FAERS Safety Report 10484239 (Version 1)
Quarter: 2014Q3

REPORT INFORMATION
  Report Type: Spontaneous
  Country: FR (occurrence: FR)
  Receive Date: 20140930
  Receipt Date: 20140930
  Transmission Date: 20150326
  Serious: Yes (Hospitalization)
  Sender: FDA-Public Use
  Company Number: FR-ASTRAZENECA-2014SE71569

PATIENT
  Age: 25905 Day
  Sex: Female

DRUGS (10)
  1. PARKINANE [Suspect]
     Active Substance: TRIHEXYPHENIDYL HYDROCHLORIDE
     Indication: PARKINSONISM
     Route: 048
  2. EFFEXOR [Suspect]
     Active Substance: VENLAFAXINE HYDROCHLORIDE
     Indication: DEPRESSION
     Route: 048
  3. EFFEXOR [Suspect]
     Active Substance: VENLAFAXINE HYDROCHLORIDE
     Indication: DEPRESSION
     Route: 048
  4. TEGRETOL [Suspect]
     Active Substance: CARBAMAZEPINE
     Indication: EPILEPSY
     Route: 048
  5. BISOPROLOL [Concomitant]
     Active Substance: BISOPROLOL
  6. ZANIDIP [Concomitant]
     Active Substance: LERCANIDIPINE HYDROCHLORIDE
  7. SERESTA [Concomitant]
     Active Substance: OXAZEPAM
  8. INEXIUM [Concomitant]
     Active Substance: ESOMEPRAZOLE
  9. XEROQUEL [Suspect]
     Active Substance: QUETIAPINE FUMARATE
     Indication: BIPOLAR I DISORDER
     Route: 048
     Dates: start: 2013
  10. XATRAL [Concomitant]
     Active Substance: ALFUZOSIN

REACTIONS (7)
  - Dehydration [Unknown]
  - Vomiting [Unknown]
  - Hyperhidrosis [Unknown]
  - Hypertension [Unknown]
  - Hypokalaemia [Unknown]
  - Agitation [Recovering/Resolving]
  - Anticholinergic syndrome [Unknown]

NARRATIVE: CASE EVENT DATE: 20140825
